FAERS Safety Report 5305761-5 (Version None)
Quarter: 2007Q2

REPORT INFORMATION
  Report Type: 
  Country: None (occurrence: None)
  Receive Date: 20070416
  Receipt Date: 20070330
  Transmission Date: 20071010
  Serious: Yes (Hospitalization, Other)
  Sender: FDA-Public Use
  Company Number: 8022309

PATIENT
  Age: 46 Year
  Sex: Male

DRUGS (5)
  1. KEPPRA [Suspect]
     Indication: DRUG WITHDRAWAL SYNDROME
     Dosage: 500 MG 2/D PO
     Route: 048
     Dates: start: 20061110, end: 20061122
  2. KEPPRA [Suspect]
     Indication: GRAND MAL CONVULSION
     Dosage: 500 MG 2/D PO
     Route: 048
     Dates: start: 20061110, end: 20061122
  3. TRILEPTAL [Concomitant]
  4. ARAVA [Concomitant]
  5. DOXEPIN HCL [Concomitant]

REACTIONS (7)
  - ABNORMAL BEHAVIOUR [None]
  - AGGRESSION [None]
  - AMNESIA [None]
  - CONVERSION DISORDER [None]
  - DEPRESSED MOOD [None]
  - MENTAL DISORDER [None]
  - PHYSICAL ASSAULT [None]
